FAERS Safety Report 22269977 (Version 1)
Quarter: 2023Q2

REPORT INFORMATION
  Report Type: Other
  Country: CN (occurrence: CN)
  Receive Date: 20230501
  Receipt Date: 20230501
  Transmission Date: 20230721
  Serious: Yes (Other)
  Sender: FDA-Public Use
  Company Number: CN-BoehringerIngelheim-2023-BI-232980

PATIENT
  Age: 33 Year
  Sex: Male

DRUGS (1)
  1. ALTEPLASE [Suspect]
     Active Substance: ALTEPLASE
     Indication: Thrombolysis
     Route: 065

REACTIONS (19)
  - Cardiac failure [Unknown]
  - Cor pulmonale chronic [Unknown]
  - Pulmonary haemorrhage [Unknown]
  - Pulmonary hypertension [Unknown]
  - Drug ineffective [Unknown]
  - Shock [Unknown]
  - Sinus tachycardia [Unknown]
  - Atrial enlargement [Unknown]
  - Pneumonia [Unknown]
  - Hepatic function abnormal [Unknown]
  - Transaminases increased [Unknown]
  - Hyperbilirubinaemia [Unknown]
  - Glomerulonephritis membranous [Unknown]
  - Chronic kidney disease [Unknown]
  - Anaemia [Unknown]
  - Platelet count decreased [Unknown]
  - Hypoproteinaemia [Unknown]
  - Pyrexia [Unknown]
  - Malnutrition [Unknown]
